FAERS Safety Report 7706032-X (Version None)
Quarter: 2011Q3

REPORT INFORMATION
  Report Type: 
  Country: None (occurrence: None)
  Receive Date: 20110824
  Receipt Date: 20110822
  Transmission Date: 20111222
  Serious: Yes (Other)
  Sender: FDA-Public Use
  Company Number: PHHY2011FR74136

PATIENT
  Age: 28 Year
  Sex: Female

DRUGS (2)
  1. SERPASIL [Concomitant]
     Dosage: 2 DF, PER DAY FOR FOUR WEEKS
  2. METHERGINE [Suspect]
     Dosage: 0.2 MG, UNK
     Route: 042

REACTIONS (13)
  - ANTEROGRADE AMNESIA [None]
  - BLOOD PRESSURE INCREASED [None]
  - VOMITING [None]
  - HALLUCINATION, VISUAL [None]
  - BLINDNESS CORTICAL [None]
  - ALBUMINURIA [None]
  - POSTURE ABNORMAL [None]
  - ANXIETY [None]
  - ELECTROENCEPHALOGRAM ABNORMAL [None]
  - VASOSPASM [None]
  - EYE MOVEMENT DISORDER [None]
  - CORNEAL REFLEX DECREASED [None]
  - HEADACHE [None]
